FAERS Safety Report 7801318-2 (Version None)
Quarter: 2011Q4

REPORT INFORMATION
  Report Type: 
  Country: None (occurrence: None)
  Receive Date: 20111006
  Receipt Date: 20111006
  Transmission Date: 20120403
  Serious: Yes (Hospitalization)
  Sender: FDA-Public Use
  Company Number: None

PATIENT
  Age: 97 Year
  Sex: Female
  Weight: 60.4 kg

DRUGS (8)
  1. CIPROFLOXACIN [Suspect]
     Indication: URINARY TRACT INFECTION
     Dosage: PO  RECENT
     Route: 048
  2. PHENERGAN HCL [Suspect]
     Dosage: PO  RECENT
     Route: 048
  3. PRAVACHOL [Concomitant]
  4. DUONEB [Concomitant]
  5. MIRALAX [Concomitant]
  6. METAMUCIL-2 [Concomitant]
  7. AGGRENOX [Concomitant]
  8. FUROSEMIDE [Concomitant]

REACTIONS (6)
  - INSOMNIA [None]
  - PYREXIA [None]
  - DELIRIUM [None]
  - HYPERHIDROSIS [None]
  - CONDITION AGGRAVATED [None]
  - MENTAL STATUS CHANGES [None]
